FAERS Safety Report 12998347 (Version 2)
Quarter: 2016Q4

REPORT INFORMATION
  Report Type: Report from Study
  Country: US (occurrence: US)
  Receive Date: 20161205
  Receipt Date: 20161219
  Transmission Date: 20170207
  Serious: Yes (Other)
  Sender: FDA-Public Use
  Company Number: US-AMGEN-USASL2016168547

PATIENT
  Age: 49 Year
  Sex: Female

DRUGS (3)
  1. ARAVA [Concomitant]
     Active Substance: LEFLUNOMIDE
     Dosage: UNK
  2. ENBREL [Suspect]
     Active Substance: ETANERCEPT
     Indication: PSORIATIC ARTHROPATHY
     Dosage: UNK
     Route: 065
     Dates: start: 1997
  3. ENBREL [Suspect]
     Active Substance: ETANERCEPT
     Indication: PSORIASIS

REACTIONS (27)
  - Fungal oesophagitis [Unknown]
  - Weight increased [Recovering/Resolving]
  - Rheumatoid arthritis [Unknown]
  - Joint lock [Unknown]
  - Spinal column stenosis [Unknown]
  - Musculoskeletal disorder [Unknown]
  - Pyrexia [Recovered/Resolved]
  - Blood test abnormal [Unknown]
  - Pain in extremity [Unknown]
  - Bone pain [Unknown]
  - Oropharyngeal pain [Recovered/Resolved]
  - Gait disturbance [Unknown]
  - Grip strength decreased [Unknown]
  - Inflammatory bowel disease [Unknown]
  - Pain [Unknown]
  - Rheumatic fever [Unknown]
  - Irritable bowel syndrome [Unknown]
  - Platelet count abnormal [Unknown]
  - Leukocytosis [Unknown]
  - Feeling abnormal [Unknown]
  - Influenza [Unknown]
  - Anxiety [Unknown]
  - Arthropathy [Unknown]
  - Intervertebral disc degeneration [Unknown]
  - Drug ineffective [Unknown]
  - Haemoglobin increased [Unknown]
  - Arthralgia [Unknown]

NARRATIVE: CASE EVENT DATE: 2014
